FAERS Safety Report 18486676 (Version 2)
Quarter: 2022Q1

REPORT INFORMATION
  Report Type: Spontaneous
  Country: US (occurrence: US)
  Receive Date: 20201110
  Receipt Date: 20220308
  Transmission Date: 20220423
  Serious: No
  Sender: FDA-Public Use
  Company Number: US-PFIZER INC-2020439250

PATIENT
  Age: 60 Year
  Sex: Female
  Weight: 103.08 kg

DRUGS (19)
  1. XELJANZ XR [Suspect]
     Active Substance: TOFACITINIB CITRATE
     Indication: Rheumatoid arthritis
     Dosage: 11 MG, DAILY
     Route: 048
     Dates: start: 20201013, end: 2020
  2. MONTELUKAST SODIUM [Concomitant]
     Active Substance: MONTELUKAST SODIUM
     Dosage: 10 MG
  3. ALBUTEROL SULFATE [Concomitant]
     Active Substance: ALBUTEROL SULFATE
     Dosage: UNK (POWDER)
  4. FEXOFENADINE HCL [Concomitant]
     Active Substance: FEXOFENADINE HYDROCHLORIDE
     Dosage: UNK (100 % POWDER)
  5. FLUTICASONE PROPIONATE [Concomitant]
     Active Substance: FLUTICASONE PROPIONATE
     Dosage: UNK
  6. ATORVASTATIN CALCIUM [Concomitant]
     Active Substance: ATORVASTATIN CALCIUM
     Dosage: 10 MG
  7. PREGABALIN [Concomitant]
     Active Substance: PREGABALIN
     Dosage: 100 MG
  8. PANTOPRAZOLE SODIUM [Concomitant]
     Active Substance: PANTOPRAZOLE SODIUM
     Dosage: 20 MG
  9. JANUVIA [Concomitant]
     Active Substance: SITAGLIPTIN PHOSPHATE
     Dosage: 100 MG
  10. SPIRONOLACTONE [Concomitant]
     Active Substance: SPIRONOLACTONE
     Dosage: UNK (100 % POWDER)
  11. LISINOPRIL [Concomitant]
     Active Substance: LISINOPRIL
     Dosage: 10 MG
  12. ADALAT CC [Concomitant]
     Active Substance: NIFEDIPINE
     Dosage: 30 MG
  13. LABETALOL HYDROCHLORIDE [Concomitant]
     Active Substance: LABETALOL HYDROCHLORIDE
     Dosage: UNK (POWDER)
  14. PEPCID [Concomitant]
     Active Substance: FAMOTIDINE
     Dosage: 20 MG
  15. HYDROCORTISONE [Concomitant]
     Active Substance: HYDROCORTISONE
     Dosage: 20 MG
  16. ONDANSETRON HCL [Concomitant]
     Active Substance: ONDANSETRON HYDROCHLORIDE
     Dosage: UNK (100 % POWDER)
  17. LOPERAMIDE [Concomitant]
     Active Substance: LOPERAMIDE
     Dosage: UNK (POWDER)
  18. CYCLOBENZAPRINE HYDROCHLORIDE [Concomitant]
     Active Substance: CYCLOBENZAPRINE HYDROCHLORIDE
     Dosage: 10 MG
  19. CETIRIZINE HCL [Concomitant]
     Active Substance: CETIRIZINE HYDROCHLORIDE
     Dosage: UNK (1 MG/ML SOLUTION)

REACTIONS (4)
  - Sinusitis [Unknown]
  - Nasal discharge discolouration [Unknown]
  - Rhinorrhoea [Unknown]
  - Confusional state [Unknown]

NARRATIVE: CASE EVENT DATE: 20201001
